FAERS Safety Report 17651045 (Version 2)
Quarter: 2020Q2

REPORT INFORMATION
  Report Type: Spontaneous
  Country: FR (occurrence: FR)
  Receive Date: 20200409
  Receipt Date: 20200415
  Transmission Date: 20200713
  Serious: Yes (Hospitalization, Other)
  Sender: FDA-Public Use
  Company Number: FR-ABBVIE-19K-056-3133124-00

PATIENT
  Sex: Male

DRUGS (4)
  1. IMBRUVICA [Suspect]
     Active Substance: IBRUTINIB
     Route: 048
  2. IMBRUVICA [Suspect]
     Active Substance: IBRUTINIB
     Route: 048
  3. IMBRUVICA [Suspect]
     Active Substance: IBRUTINIB
     Indication: CHRONIC LYMPHOCYTIC LEUKAEMIA
     Route: 048
  4. IMBRUVICA [Suspect]
     Active Substance: IBRUTINIB
     Route: 048

REACTIONS (13)
  - Infection [Recovered/Resolved]
  - Red blood cell count decreased [Unknown]
  - Hypersensitivity [Unknown]
  - Sepsis [Recovered/Resolved]
  - Contusion [Recovered/Resolved]
  - Respiratory failure [Unknown]
  - Abdominal infection [Recovered/Resolved]
  - Cellulitis [Recovered/Resolved]
  - Impaired healing [Unknown]
  - Haemorrhage [Unknown]
  - Fistula [Unknown]
  - Pneumonia [Recovered/Resolved]
  - Dyspepsia [Unknown]
